FAERS Safety Report 14711439 (Version 8)
Quarter: 2025Q3

REPORT INFORMATION
  Report Type: Spontaneous
  Country: GB (occurrence: GB)
  Receive Date: 20180403
  Receipt Date: 20250822
  Transmission Date: 20251021
  Serious: Yes (Death, Life-Threatening, Hospitalization, Other)
  Sender: BRISTOL-MYERS SQUIBB COMPANY
  Company Number: GB-BRISTOL-MYERS SQUIBB COMPANY-BMS-2018-025667

PATIENT
  Age: 54 Year
  Sex: Male

DRUGS (7)
  1. NIVOLUMAB [Suspect]
     Active Substance: NIVOLUMAB
     Indication: Follicular lymphoma
     Dosage: 3 MILLIGRAM/KILOGRAM
  2. ALLOPURINOL [Suspect]
     Active Substance: ALLOPURINOL
     Indication: Prophylaxis
  3. FLUCONAZOLE [Suspect]
     Active Substance: FLUCONAZOLE
     Indication: Prophylaxis
  4. COTRIMOXAZOLE [Suspect]
     Active Substance: SULFAMETHOXAZOLE\TRIMETHOPRIM
     Indication: Prophylaxis
  5. METHYLPREDNISOLONE [Suspect]
     Active Substance: METHYLPREDNISOLONE
     Indication: Rash maculo-papular
     Dosage: 1 GRAM, QD
     Route: 042
  6. RITUXIMAB [Concomitant]
     Active Substance: RITUXIMAB
     Indication: Lymphoma
  7. ZEVALIN [Concomitant]
     Active Substance: IBRITUMOMAB TIUXETAN
     Indication: Lymphoma

REACTIONS (3)
  - Toxic epidermal necrolysis [Fatal]
  - Multiple organ dysfunction syndrome [Fatal]
  - Off label use [Unknown]
